FAERS Safety Report 16707109 (Version 2)
Quarter: 2019Q3

REPORT INFORMATION
  Report Type: Not Available
  Country: US (occurrence: US)
  Receive Date: 20190815
  Receipt Date: 20190902
  Transmission Date: 20191004
  Serious: No
  Sender: FDA-Public Use
  Company Number: US-NEUROCRINE BIOSCIENCES INC.-2019NBI02201

PATIENT
  Age: 73 Year
  Sex: Male
  Weight: 74.91 kg

DRUGS (4)
  1. INGREZZA [Suspect]
     Active Substance: VALBENAZINE
     Dosage: ONE CAPSULE AT 7 AM, ONE CAPSULE AT 2 PM
     Route: 048
     Dates: start: 20190819
  2. INGREZZA [Suspect]
     Active Substance: VALBENAZINE
     Dosage: ONE CAPSULE AT 7 AM,
     Route: 048
     Dates: start: 2019, end: 20190818
  3. INGREZZA [Suspect]
     Active Substance: VALBENAZINE
     Route: 048
     Dates: start: 20190718, end: 2019
  4. INGREZZA [Suspect]
     Active Substance: VALBENAZINE
     Indication: TARDIVE DYSKINESIA
     Route: 048
     Dates: start: 20190709, end: 20190717

REACTIONS (5)
  - Stomatitis [Not Recovered/Not Resolved]
  - Urinary retention [Recovered/Resolved]
  - Nervousness [Recovered/Resolved]
  - Constipation [Recovered/Resolved]
  - Agitation [Recovered/Resolved]

NARRATIVE: CASE EVENT DATE: 2019
